FAERS Safety Report 6979086-6 (Version None)
Quarter: 2010Q3

REPORT INFORMATION
  Report Type: 
  Country: None (occurrence: None)
  Receive Date: 20100913
  Receipt Date: 20100831
  Transmission Date: 20110219
  Serious: Yes (Hospitalization, Other)
  Sender: FDA-Public Use
  Company Number: PHHY2010BR57830

PATIENT
  Sex: Female
  Weight: 68 kg

DRUGS (6)
  1. DIOVAN [Suspect]
     Indication: HYPERTENSION
     Dosage: 1 TABLET A DAY AT NIGHT
     Route: 048
     Dates: start: 20060101
  2. DIOVAN [Suspect]
     Dosage: 2 TABLETS
  3. DIOVAN HCT [Suspect]
     Indication: HYPERTENSION
     Dosage: 1 TABLET A DAY, AT MORNING
     Route: 048
     Dates: start: 20060101
  4. RIVOTRIL [Concomitant]
     Indication: INSOMNIA
     Dosage: 1 TABLET A DAY AT NIGHT
     Route: 048
     Dates: start: 19300101
  5. PURAN T4 [Concomitant]
     Indication: HYPERTHYROIDISM
     Dosage: 1 TABLET A DAY
     Route: 048
  6. MINERAL ICE [Concomitant]
     Dosage: TWICE A DAY
     Route: 061
     Dates: start: 20060101

REACTIONS (7)
  - BACK INJURY [None]
  - BACK PAIN [None]
  - BLOOD PRESSURE INCREASED [None]
  - FALL [None]
  - HEAD INJURY [None]
  - LABYRINTHITIS [None]
  - SUTURE INSERTION [None]
